FAERS Safety Report 17719575 (Version 1)
Quarter: 2020Q2

REPORT INFORMATION
  Report Type: Spontaneous
  Country: US (occurrence: US)
  Receive Date: 20200428
  Receipt Date: 20200428
  Transmission Date: 20200714
  Serious: No
  Sender: FDA-Public Use
  Company Number: US-LANNETT COMPANY, INC.-US-2019LAN001222

PATIENT
  Age: 49 Year
  Sex: Female
  Weight: 90.7 kg

DRUGS (3)
  1. VASELINE                           /00473501/ [Suspect]
     Active Substance: PARAFFIN
     Indication: ORAL DISCOMFORT
     Dosage: UNK
     Route: 061
     Dates: start: 20191103
  2. HYDROCORTISONE CREAM 2.5% [Suspect]
     Active Substance: HYDROCORTISONE
     Indication: ORAL DISCOMFORT
     Dosage: UNK
     Route: 061
     Dates: start: 201911
  3. VASELINE                           /00473501/ [Suspect]
     Active Substance: PARAFFIN
     Indication: CHEILITIS

REACTIONS (1)
  - Lip exfoliation [Unknown]

NARRATIVE: CASE EVENT DATE: 201911
